FAERS Safety Report 11939008 (Version 2)
Quarter: 2016Q2

REPORT INFORMATION
  Report Type: Spontaneous
  Country: SE (occurrence: SE)
  Receive Date: 20160122
  Receipt Date: 20160413
  Transmission Date: 20160815
  Serious: Yes (Hospitalization)
  Sender: FDA-Public Use
  Company Number: SE-SA-2016SA008944

PATIENT
  Age: 60 Year
  Sex: Female

DRUGS (1)
  1. ARAVA [Suspect]
     Active Substance: LEFLUNOMIDE
     Indication: SPONDYLITIS
     Route: 048
     Dates: start: 20151021

REACTIONS (6)
  - Myalgia [Unknown]
  - Pyrexia [Recovering/Resolving]
  - C-reactive protein increased [Recovering/Resolving]
  - Blister [Unknown]
  - Mouth ulceration [Recovering/Resolving]
  - Skin fissures [Unknown]
